FAERS Safety Report 6741195-4 (Version None)
Quarter: 2010Q2

REPORT INFORMATION
  Report Type: 
  Country: None (occurrence: None)
  Receive Date: 20100524
  Receipt Date: 20100512
  Transmission Date: 20101027
  Serious: Yes (Death, Hospitalization)
  Sender: FDA-Public Use
  Company Number: 2009AC000467

PATIENT
  Age: 57 Year
  Sex: Female

DRUGS (18)
  1. DIGOXIN [Suspect]
     Dates: start: 20070401, end: 20071201
  2. BUMEX [Concomitant]
  3. LEVAQUIN [Concomitant]
  4. ATENOLOL [Concomitant]
  5. NITROFURANTOIN [Concomitant]
  6. WARFARIN [Concomitant]
  7. SOLU-MEDROL [Concomitant]
  8. CLEOCIN [Concomitant]
  9. CEFRIAXONE [Concomitant]
  10. COLACE [Concomitant]
  11. FERATAB [Concomitant]
  12. FUROSEMIDE [Concomitant]
  13. PANTOPRAZOLE [Concomitant]
  14. PULMICORT [Concomitant]
  15. ATENOLOL [Concomitant]
  16. M.V.I. [Concomitant]
  17. ZINC SULFATE [Concomitant]
  18. VITAMIN C [Concomitant]

REACTIONS (22)
  - ANAEMIA [None]
  - ASTHENIA [None]
  - ATELECTASIS [None]
  - CARDIO-RESPIRATORY ARREST [None]
  - CARDIOVASCULAR DISORDER [None]
  - CELLULITIS [None]
  - CHRONIC OBSTRUCTIVE PULMONARY DISEASE [None]
  - DEHYDRATION [None]
  - DYSSTASIA [None]
  - ECONOMIC PROBLEM [None]
  - FALL [None]
  - ILL-DEFINED DISORDER [None]
  - INJURY [None]
  - LEFT VENTRICULAR HYPERTROPHY [None]
  - LYMPHOEDEMA [None]
  - MITRAL VALVE INCOMPETENCE [None]
  - NAUSEA [None]
  - PNEUMONIA [None]
  - SPINAL OSTEOARTHRITIS [None]
  - TRICUSPID VALVE INCOMPETENCE [None]
  - URINARY TRACT INFECTION [None]
  - VOMITING [None]
